FAERS Safety Report 16798607 (Version 2)
Quarter: 2019Q3

REPORT INFORMATION
  Report Type: Spontaneous
  Country: US (occurrence: US)
  Receive Date: 20190912
  Receipt Date: 20190920
  Transmission Date: 20191005
  Serious: Yes (Death)
  Sender: FDA-Public Use
  Company Number: US-GLENMARK PHARMACEUTICALS-2019GMK042316

PATIENT

DRUGS (3)
  1. MUPIROCIN OINTMENT USP, 2% [Suspect]
     Active Substance: MUPIROCIN
     Indication: SKIN LESION
     Dosage: UNK, OD (PROBABLY 3 DAYS)
     Route: 061
  2. MUPIROCIN OINTMENT USP, 2% [Suspect]
     Active Substance: MUPIROCIN
     Indication: WOUND SECRETION
  3. MUPIROCIN OINTMENT USP, 2% [Suspect]
     Active Substance: MUPIROCIN
     Indication: NEOPLASM SKIN

REACTIONS (5)
  - Wrong technique in product usage process [Unknown]
  - Death [Fatal]
  - Product use in unapproved indication [Unknown]
  - Product prescribing issue [Unknown]
  - Product packaging quantity issue [Unknown]
